FAERS Safety Report 6633010-4 (Version None)
Quarter: 2010Q1

REPORT INFORMATION
  Report Type: 
  Country: None (occurrence: None)
  Receive Date: 20100312
  Receipt Date: 20100308
  Transmission Date: 20100710
  Serious: Yes (Death)
  Sender: FDA-Public Use
  Company Number: US-ASTRAZENECA-2010SE09867

PATIENT
  Age: 79 Year
  Sex: Female
  Weight: 130 kg

DRUGS (1)
  1. SEROQUEL [Suspect]
     Indication: INSOMNIA
     Route: 048
     Dates: start: 20090101, end: 20100202

REACTIONS (2)
  - DEATH [None]
  - DEMENTIA [None]
